FAERS Safety Report 17207688 (Version 1)
Quarter: 2019Q4

REPORT INFORMATION
  Report Type: Spontaneous
  Country: US (occurrence: US)
  Receive Date: 20191223
  Receipt Date: 20191223
  Transmission Date: 20200122
  Serious: Yes (Death, Hospitalization)
  Sender: FDA-Public Use
  Company Number: None

PATIENT
  Age: 60 Year
  Sex: Male

DRUGS (1)
  1. HEPARIN [Suspect]
     Active Substance: HEPARIN SODIUM
     Indication: RETROPERITONEAL HAEMORRHAGE
     Dates: start: 20191101, end: 20191115

REACTIONS (8)
  - Pain [None]
  - Hypotension [None]
  - Encephalopathy [None]
  - Epistaxis [None]
  - Haemoglobin decreased [None]
  - Retroperitoneal haemorrhage [None]
  - Abdominal distension [None]
  - Shock haemorrhagic [None]

NARRATIVE: CASE EVENT DATE: 20191106
